FAERS Safety Report 19992090 (Version 1)
Quarter: 2021Q4

REPORT INFORMATION
  Report Type: Report from Study
  Country: US (occurrence: US)
  Receive Date: 20211026
  Receipt Date: 20211026
  Transmission Date: 20220303
  Serious: No
  Sender: FDA-Public Use
  Company Number: US-BRACCO-2021US01969

PATIENT
  Age: 5 Month

DRUGS (1)
  1. PROHANCE [Suspect]
     Active Substance: GADOTERIDOL
     Indication: Magnetic resonance imaging
     Dosage: 0.1 MMOL/ KG BODY WEIGHT, SINGLE
     Route: 040

REACTIONS (3)
  - Haemoglobin decreased [Recovered/Resolved]
  - Blood chloride increased [Recovered/Resolved]
  - Blood sodium increased [Recovered/Resolved]
